FAERS Safety Report 25631789 (Version 1)
Quarter: 2025Q3

REPORT INFORMATION
  Report Type: Spontaneous
  Country: EU (occurrence: EU)
  Receive Date: 20250801
  Receipt Date: 20250801
  Transmission Date: 20251021
  Serious: Yes (Other)
  Sender: Atnahs Healthcare
  Company Number: EU-ATNAHS-2025-PMNV-HR000317

PATIENT

DRUGS (2)
  1. DIAZEPAM [Suspect]
     Active Substance: DIAZEPAM
     Indication: Suicidal ideation
     Dosage: 200 MG, DAILY
     Route: 048
     Dates: start: 20250626
  2. RIVOTRIL [Suspect]
     Active Substance: CLONAZEPAM
     Indication: Suicidal ideation
     Dosage: 60 MG, DAILY 1 IN 1 DAY
     Route: 048
     Dates: start: 20250626, end: 20250626

REACTIONS (2)
  - Suicide attempt [Unknown]
  - Intentional overdose [Unknown]

NARRATIVE: CASE EVENT DATE: 20250626
